FAERS Safety Report 16952612 (Version 1)
Quarter: 2019Q4

REPORT INFORMATION
  Report Type: Spontaneous
  Country: US (occurrence: US)
  Receive Date: 20190904
  Receipt Date: 20190904
  Transmission Date: 20200122
  Serious: Yes (Other)
  Sender: FDA-Public Use
  Company Number: None

PATIENT
  Age: 16 Year
  Sex: Male
  Weight: 39.92 kg

DRUGS (2)
  1. DEXMETHYLPHENIDATE (FOCALIN GENERIC) [Suspect]
     Active Substance: DEXMETHYLPHENIDATE
     Indication: ATTENTION DEFICIT/HYPERACTIVITY DISORDER
     Route: 048
     Dates: start: 20190729
  2. DEXMETHYLPHENIDATE (FOCALIN GENERIC) [Suspect]
     Active Substance: DEXMETHYLPHENIDATE
     Route: 048

REACTIONS (2)
  - Therapeutic response changed [None]
  - Aggression [None]

NARRATIVE: CASE EVENT DATE: 20190827
